FAERS Safety Report 5469934-3 (Version None)
Quarter: 2007Q3

REPORT INFORMATION
  Report Type: 
  Country: None (occurrence: None)
  Receive Date: 20070927
  Receipt Date: 20070226
  Transmission Date: 20080115
  Serious: No
  Sender: FDA-Public Use
  Company Number: US-AMGEN-KDL212785

PATIENT
  Sex: Male

DRUGS (2)
  1. NEUPOGEN [Suspect]
     Indication: NEUTROPENIA
     Route: 058
     Dates: start: 20070101
  2. TEMODAR [Concomitant]

REACTIONS (4)
  - ABDOMINAL TENDERNESS [None]
  - BONE PAIN [None]
  - HEADACHE [None]
  - MUSCULOSKELETAL CHEST PAIN [None]
